FAERS Safety Report 7352510-5 (Version None)
Quarter: 2011Q1

REPORT INFORMATION
  Report Type: 
  Country: None (occurrence: None)
  Receive Date: 20110315
  Receipt Date: 20110310
  Transmission Date: 20110831
  Serious: Yes (Other)
  Sender: FDA-Public Use
  Company Number: FR-PFIZER INC-2011053809

PATIENT
  Age: 36 Year
  Sex: Female

DRUGS (4)
  1. REMICADE [Suspect]
     Indication: CROHN'S DISEASE
     Dosage: 5 MG/KG (= 300 MG)
     Route: 042
     Dates: start: 20110121, end: 20110208
  2. REMICADE [Suspect]
     Indication: ANKYLOSING SPONDYLITIS
  3. SOLU-MEDROL [Suspect]
     Indication: PREMEDICATION
     Dosage: 100 MG PER DAY
     Route: 042
     Dates: start: 20110121, end: 20110208
  4. HYDROCORTISONE [Concomitant]
     Indication: PREMEDICATION
     Dosage: UNK
     Dates: start: 20110208

REACTIONS (3)
  - HYPERHIDROSIS [None]
  - NAUSEA [None]
  - HYPOTHERMIA [None]
